FAERS Safety Report 4829370-7 (Version None)
Quarter: 2005Q4

REPORT INFORMATION
  Report Type: 
  Country: None (occurrence: None)
  Receive Date: 20051028
  Receipt Date: 20050815
  Transmission Date: 20060501
  Serious: No
  Sender: FDA-Public Use
  Company Number: COT_0190_2005

PATIENT
  Age: 43 Year
  Sex: Female
  Weight: 58.9676 kg

DRUGS (19)
  1. VENTAVIS [Suspect]
     Indication: PULMONARY HYPERTENSION
     Dosage: 5 MCG VARIABLE IH
     Route: 055
     Dates: start: 20050811, end: 20050814
  2. VENTAVIS [Suspect]
     Indication: PULMONARY HYPERTENSION
     Dosage: 5 MCG VARIABLE IH
     Route: 055
     Dates: start: 20050811, end: 20050814
  3. TRACLEER [Concomitant]
  4. TOPAMAX [Concomitant]
  5. ZOLOFT [Concomitant]
  6. REBIF [Concomitant]
  7. AMANTADINE HCL [Concomitant]
  8. FUROSEMIDE [Concomitant]
  9. VALTREX [Concomitant]
  10. SPIRONOLACTONE [Concomitant]
  11. AMBIEN [Concomitant]
  12. K-DUR 10 [Concomitant]
  13. FLONASE [Concomitant]
  14. NEXIUM [Concomitant]
  15. VITAMIN E [Concomitant]
  16. MULTI-VITAMINS [Concomitant]
  17. VITAMIN B COMPLEX CAP [Concomitant]
  18. ASCORBIC ACID [Concomitant]
  19. MISOPROSTIL [Concomitant]

REACTIONS (5)
  - COUGH [None]
  - EPISTAXIS [None]
  - FEELING COLD [None]
  - GLOSSODYNIA [None]
  - INCREASED UPPER AIRWAY SECRETION [None]
